FAERS Safety Report 16370490 (Version 1)
Quarter: 2019Q2

REPORT INFORMATION
  Report Type: Spontaneous
  Country: US (occurrence: US)
  Receive Date: 20190530
  Receipt Date: 20190530
  Transmission Date: 20190711
  Serious: Yes (Hospitalization, Other)
  Sender: FDA-Public Use
  Company Number: US-AXELLIA-002487

PATIENT
  Age: 26 Year
  Sex: Female

DRUGS (5)
  1. MEROPENEM. [Suspect]
     Active Substance: MEROPENEM
     Indication: PNEUMONIA PSEUDOMONAL
     Route: 042
  2. VANCOMYCIN [Suspect]
     Active Substance: VANCOMYCIN
     Indication: PNEUMONIA PSEUDOMONAL
     Route: 042
  3. AZITHROMYCIN ANHYDROUS. [Suspect]
     Active Substance: AZITHROMYCIN ANHYDROUS
     Indication: PNEUMONIA PSEUDOMONAL
     Dosage: FOR 4 WEEKS
     Route: 042
  4. PIPERACILLIN/TAZOBACTAM [Suspect]
     Active Substance: PIPERACILLIN SODIUM\TAZOBACTAM SODIUM
     Indication: PNEUMONIA PSEUDOMONAL
     Dosage: FOR THE FIRST 2 WEEKS
     Route: 042
  5. COLISTIN [Suspect]
     Active Substance: COLISTIN
     Indication: PNEUMONIA PSEUDOMONAL
     Dosage: FOR 4 WEEKS?ALSO RECEIVED INHALED COLISTIN
     Route: 042

REACTIONS (2)
  - Condition aggravated [Unknown]
  - Renal failure [Recovered/Resolved]
